FAERS Safety Report 18563537 (Version 1)
Quarter: 2020Q4

REPORT INFORMATION
  Report Type: Spontaneous
  Country: FR (occurrence: FR)
  Receive Date: 20201201
  Receipt Date: 20201201
  Transmission Date: 20210114
  Serious: Yes (Hospitalization)
  Sender: FDA-Public Use
  Company Number: FR-TEVA-2020-FR-1853353

PATIENT
  Age: 4 Year
  Sex: Female
  Weight: 13.4 kg

DRUGS (3)
  1. CEFPODOXIME [Suspect]
     Active Substance: CEFPODOXIME
     Indication: OTITIS MEDIA ACUTE
     Dosage: DOSAGE NOT COMMUNICATED
     Route: 048
     Dates: start: 20201026, end: 20201027
  2. AMOXICILLINE [Suspect]
     Active Substance: AMOXICILLIN
     Indication: OTITIS MEDIA ACUTE
     Dosage: DOSAGE NOT COMMUNICATED
     Route: 048
     Dates: start: 20201023, end: 20201026
  3. TEGRETOL [Suspect]
     Active Substance: CARBAMAZEPINE
     Indication: SEIZURE PROPHYLAXIS
     Dosage: UNIT DOSE : 6 MG/KG
     Route: 048
     Dates: start: 20201015, end: 20201027

REACTIONS (1)
  - Skin reaction [Recovered/Resolved]

NARRATIVE: CASE EVENT DATE: 20201025
